FAERS Safety Report 9543385 (Version 2)
Quarter: 2013Q4

REPORT INFORMATION
  Report Type: Spontaneous
  Country: US (occurrence: US)
  Receive Date: 20130923
  Receipt Date: 20131105
  Transmission Date: 20140711
  Serious: Yes (Hospitalization)
  Sender: FDA-Public Use
  Company Number: US-PFIZER INC-2013271792

PATIENT
  Sex: Female

DRUGS (2)
  1. XELJANZ [Suspect]
     Dosage: UNK
     Route: 065
  2. ENBREL [Suspect]
     Dosage: UNK
     Route: 065
     Dates: start: 2005

REACTIONS (2)
  - Pancreatitis [Unknown]
  - Oropharyngeal pain [Unknown]
